FAERS Safety Report 8790499 (Version 1)
Quarter: 2012Q4

REPORT INFORMATION
  Report Type: Spontaneous
  Country: US (occurrence: None)
  Receive Date: 20120905
  Receipt Date: 20120905
  Transmission Date: 20130627
  Serious: Yes (Hospitalization)
  Sender: FDA-Public Use
  Company Number: AUR-APL-2012-03682

PATIENT
  Age: 62 Year
  Sex: Male

DRUGS (7)
  1. RAMIPRIL (RAMIPRIL) [Suspect]
     Indication: HYPERTENSION
     Route: 048
  2. BRILIQUE [Suspect]
     Indication: THROMBOSIS PROPHYLAXIS
     Dosage: 2 DOSAGE FORMS, 1 D ORAL
     Route: 048
     Dates: start: 20120601
  3. SALICYLIC ACID ACETYL [Suspect]
     Indication: CARDIOVASCULAR EVENT PROPHYLAXIS
     Route: 048
     Dates: start: 20080101
  4. ATENOLOL (ATENOLOL) [Concomitant]
  5. ATORVASTATIN (ATORVASTATIN) [Concomitant]
  6. GLYCERYL TRINITRATE (GLYCERYL TRINITRATE) [Concomitant]
  7. LEVETIRACETAM (LEVETIRACETAM) [Concomitant]

REACTIONS (2)
  - Anaemia [None]
  - Gastric ulcer haemorrhage [None]
